FAERS Safety Report 10644758 (Version 3)
Quarter: 2016Q2

REPORT INFORMATION
  Report Type: Report from Study
  Country: BR (occurrence: BR)
  Receive Date: 20141211
  Receipt Date: 20160422
  Transmission Date: 20160815
  Serious: Yes (Hospitalization)
  Sender: FDA-Public Use
  Company Number: BR-ROCHE-1503778

PATIENT
  Sex: Female
  Weight: 65 kg

DRUGS (6)
  1. MABTHERA [Suspect]
     Active Substance: RITUXIMAB
     Indication: RHEUMATOID ARTHRITIS
     Dosage: 100 MG/10 ML 2 VIALS
     Route: 042
     Dates: start: 20141114
  2. NAPROXEN. [Concomitant]
     Active Substance: NAPROXEN
  3. DOLAMIN (BRAZIL) [Concomitant]
  4. PREDNISONE. [Concomitant]
     Active Substance: PREDNISONE
     Route: 065
  5. VIMOVO [Concomitant]
     Active Substance: ESOMEPRAZOLE MAGNESIUM\NAPROXEN
  6. AZATHIOPRINE. [Concomitant]
     Active Substance: AZATHIOPRINE
     Route: 065

REACTIONS (7)
  - Inflammation [Unknown]
  - Fatigue [Not Recovered/Not Resolved]
  - Immunodeficiency [Unknown]
  - Pyrexia [Not Recovered/Not Resolved]
  - Ill-defined disorder [Unknown]
  - Viral infection [Unknown]
  - Arthritis [Unknown]
